FAERS Safety Report 24804075 (Version 1)
Quarter: 2025Q1

REPORT INFORMATION
  Report Type: Spontaneous
  Country: FR (occurrence: FR)
  Receive Date: 20250103
  Receipt Date: 20250103
  Transmission Date: 20250409
  Serious: Yes (Other)
  Sender: NOVA LABORATORIES LIMITED
  Company Number: FR-Nova Laboratories Limited-2168225

PATIENT
  Age: 16 Year
  Sex: Male
  Weight: 52 kg

DRUGS (2)
  1. PURIXAN [Suspect]
     Active Substance: MERCAPTOPURINE
     Indication: B-cell type acute leukaemia
     Dates: start: 20241022, end: 20241208
  2. METHOTREXATE [Suspect]
     Active Substance: METHOTREXATE
     Dates: start: 20241113, end: 20241204

REACTIONS (1)
  - Acquired factor V deficiency [Not Recovered/Not Resolved]

NARRATIVE: CASE EVENT DATE: 20241201
